FAERS Safety Report 5692010-1 (Version None)
Quarter: 2008Q2

REPORT INFORMATION
  Report Type: 
  Country: None (occurrence: None)
  Receive Date: 20080402
  Receipt Date: 20080326
  Transmission Date: 20081010
  Serious: Yes (Disabling)
  Sender: FDA-Public Use
  Company Number: US-GILEAD-2008-0015111

PATIENT
  Sex: Male
  Weight: 76.272 kg

DRUGS (9)
  1. AMBRISENTAN [Suspect]
     Indication: PULMONARY HYPERTENSION
     Dates: start: 20070809, end: 20080115
  2. BICALUTAMIDE [Concomitant]
  3. SOTALOL HCL [Concomitant]
     Dates: start: 20051001
  4. AMLODIPINE BESYLATE [Concomitant]
     Dates: start: 20071029
  5. ASPIRIN [Concomitant]
     Dates: start: 20051001
  6. LASIX [Concomitant]
     Dates: start: 20071107
  7. FOSINOPRIL SODIUM [Concomitant]
     Dates: start: 20071029
  8. OMEPRAZOLE [Concomitant]
     Dates: start: 20060101
  9. LUPRON [Concomitant]
     Dates: start: 20071212

REACTIONS (1)
  - CEREBROVASCULAR ACCIDENT [None]
